FAERS Safety Report 7998889-2 (Version None)
Quarter: 2011Q4

REPORT INFORMATION
  Report Type: 
  Country: None (occurrence: None)
  Receive Date: 20111221
  Receipt Date: 20111220
  Transmission Date: 20120403
  Serious: Yes (Other)
  Sender: FDA-Public Use
  Company Number: US-GLAXOSMITHKLINE-A0958805A

PATIENT
  Age: 61 Year
  Sex: Female

DRUGS (2)
  1. LOVAZA [Suspect]
     Indication: BLOOD TRIGLYCERIDES INCREASED
     Dosage: 1CAP TWICE PER DAY
     Route: 048
     Dates: start: 20111001, end: 20111121
  2. VITAMIN B-12 [Concomitant]

REACTIONS (11)
  - PAIN IN EXTREMITY [None]
  - PLATELET COUNT INCREASED [None]
  - WEIGHT DECREASED [None]
  - PYREXIA [None]
  - AGEUSIA [None]
  - ABASIA [None]
  - MYALGIA [None]
  - HEADACHE [None]
  - CHILLS [None]
  - JOINT SWELLING [None]
  - ANAEMIA [None]
